FAERS Safety Report 20973751 (Version 1)
Quarter: 2022Q2

REPORT INFORMATION
  Report Type: Spontaneous
  Country: GB (occurrence: GB)
  Receive Date: 20220617
  Receipt Date: 20220617
  Transmission Date: 20220720
  Serious: Yes (Other)
  Sender: FDA-Public Use
  Company Number: GB-SANOFI-01116134

PATIENT
  Sex: Male

DRUGS (6)
  1. OMEPRAZOLE [Suspect]
     Active Substance: OMEPRAZOLE
     Route: 065
  2. RIVAROXABAN [Suspect]
     Active Substance: RIVAROXABAN
     Route: 065
  3. RAMIPRIL [Suspect]
     Active Substance: RAMIPRIL
     Dosage: UNK UNK, QD;ADDITIONAL INFO: AEGIS PRODUCT NAME: RAMIPRIL STRENGTH : 1.25 MG LOT NUMBER:NA,EXPIRATIO
     Route: 065
  4. LYRICA [Concomitant]
     Active Substance: PREGABALIN
     Route: 065
  5. ACETAMINOPHEN [Concomitant]
     Active Substance: ACETAMINOPHEN
     Dosage: FREQUENCY: 4 DAYS
     Route: 065
  6. PRADAXA [Concomitant]
     Active Substance: DABIGATRAN ETEXILATE MESYLATE
     Route: 065

REACTIONS (11)
  - Type 2 diabetes mellitus [Unknown]
  - Eye disorder [Unknown]
  - Insomnia [Unknown]
  - Visual impairment [Unknown]
  - Memory impairment [Unknown]
  - Vertigo [Unknown]
  - Tinnitus [Unknown]
  - Headache [Unknown]
  - Dry mouth [Unknown]
  - Lip dry [Unknown]
  - Dyspnoea [Unknown]
